FAERS Safety Report 20688610 (Version 1)
Quarter: 2022Q2

REPORT INFORMATION
  Report Type: Spontaneous
  Country: CA (occurrence: None)
  Receive Date: 20220408
  Receipt Date: 20220408
  Transmission Date: 20220721
  Serious: Yes (Other)
  Sender: FDA-Public Use
  Company Number: CA-PFIZER INC-202200176789

PATIENT
  Age: 7 Decade
  Sex: Male

DRUGS (3)
  1. METHOTREXATE [Suspect]
     Active Substance: METHOTREXATE
     Indication: Rheumatoid arthritis
     Route: 048
  2. INFLIXIMAB [Suspect]
     Active Substance: INFLIXIMAB
     Indication: Rheumatoid arthritis
     Route: 042
  3. PREDNISONE [Suspect]
     Active Substance: PREDNISONE
     Indication: Rheumatoid arthritis
     Dosage: CHRONIC LOW-DOSE
     Route: 048

REACTIONS (5)
  - Mycobacterium haemophilum infection [Recovering/Resolving]
  - Polyarthritis [Recovering/Resolving]
  - Lymphadenitis [Recovering/Resolving]
  - Skin mass [Recovering/Resolving]
  - Pain of skin [Recovering/Resolving]
